FAERS Safety Report 10255162 (Version 1)
Quarter: 2014Q2

REPORT INFORMATION
  Report Type: Spontaneous
  Country: CA (occurrence: CA)
  Receive Date: 20140624
  Receipt Date: 20140624
  Transmission Date: 20141212
  Serious: Yes (Other)
  Sender: FDA-Public Use
  Company Number: CA-PFIZER INC-2014167271

PATIENT
  Age: 77 Year
  Sex: Male
  Weight: 91.16 kg

DRUGS (7)
  1. ATORVASTATIN CALCIUM [Suspect]
     Dosage: 20 MG, 1X/DAY
     Route: 048
  2. ACETAMINOPHEN [Interacting]
     Dosage: 650 MG, 3X/DAY (1 EVERY 8 HOURS)
     Route: 048
  3. BRILINTA [Interacting]
     Dosage: 90 MG, 2X/DAY
     Route: 048
  4. ACETAMINOPHEN [Concomitant]
     Dosage: UNK
  5. ALFUZOSIN [Concomitant]
     Dosage: UNK
  6. ASAPHEN EC [Concomitant]
     Dosage: UNK
  7. METOPROLOL [Concomitant]
     Dosage: UNK

REACTIONS (4)
  - Alanine aminotransferase increased [Recovered/Resolved]
  - Aspartate aminotransferase increased [Recovered/Resolved]
  - Blood lactate dehydrogenase increased [Recovered/Resolved]
  - Drug interaction [Recovered/Resolved]
